FAERS Safety Report 20843830 (Version 1)
Quarter: 2022Q2

REPORT INFORMATION
  Report Type: Spontaneous
  Country: US (occurrence: None)
  Receive Date: 20220518
  Receipt Date: 20220518
  Transmission Date: 20220720
  Serious: No
  Sender: FDA-Public Use
  Company Number: 2022A162244

PATIENT
  Age: 66 Year
  Sex: Female
  Weight: 76.7 kg

DRUGS (2)
  1. BUDESONIDE\FORMOTEROL\GLYCOPYRRONIUM [Suspect]
     Active Substance: BUDESONIDE\FORMOTEROL\GLYCOPYRRONIUM
     Indication: Chronic obstructive pulmonary disease
     Dosage: 160/4.8/9 MCG 2 PUFFS TWICE DAILY
     Route: 055
  2. BUDESONIDE\FORMOTEROL\GLYCOPYRRONIUM [Suspect]
     Active Substance: BUDESONIDE\FORMOTEROL\GLYCOPYRRONIUM
     Indication: Chronic obstructive pulmonary disease
     Dosage: ONCE DAILY IN THE MORNING
     Route: 055

REACTIONS (7)
  - Dyspnoea [Unknown]
  - Feeling jittery [Unknown]
  - Tremor [Unknown]
  - Dyspnoea [Unknown]
  - Drug delivery system malfunction [Unknown]
  - Therapy non-responder [Unknown]
  - Device issue [Unknown]

NARRATIVE: CASE EVENT DATE: 20220101
